FAERS Safety Report 11135913 (Version 1)
Quarter: 2015Q2

REPORT INFORMATION
  Report Type: Spontaneous
  Country: US (occurrence: US)
  Receive Date: 20150526
  Receipt Date: 20150526
  Transmission Date: 20150821
  Serious: No
  Sender: FDA-Public Use
  Company Number: US-MALLINCKRODT-T201502043

PATIENT
  Age: 53 Year
  Sex: Female
  Weight: 59.41 kg

DRUGS (1)
  1. H.P. ACTHAR [Suspect]
     Active Substance: CORTICOTROPIN
     Indication: MULTIPLE SCLEROSIS RELAPSE
     Dosage: UNK, ONCE DAILY FOR 10 DAYS
     Route: 058
     Dates: start: 20150330, end: 20150408

REACTIONS (3)
  - Peripheral swelling [Not Recovered/Not Resolved]
  - Skin tightness [Not Recovered/Not Resolved]
  - Swelling face [Not Recovered/Not Resolved]

NARRATIVE: CASE EVENT DATE: 20150406
